FAERS Safety Report 6714161-2 (Version None)
Quarter: 2010Q2

REPORT INFORMATION
  Report Type: 
  Country: None (occurrence: None)
  Receive Date: 20100506
  Receipt Date: 20100428
  Transmission Date: 20101027
  Serious: Yes (Hospitalization)
  Sender: FDA-Public Use
  Company Number: CA-BAXTER-2010BH008740

PATIENT
  Sex: Male

DRUGS (1)
  1. DIANEAL [Suspect]
     Indication: PERITONEAL DIALYSIS
     Route: 033

REACTIONS (7)
  - ABDOMINAL DISTENSION [None]
  - CHOLELITHIASIS [None]
  - DECREASED APPETITE [None]
  - DIARRHOEA [None]
  - GASTRITIS [None]
  - HEPATIC ENZYME INCREASED [None]
  - VOMITING [None]
